FAERS Safety Report 18774337 (Version 2)
Quarter: 2021Q2

REPORT INFORMATION
  Report Type: Report from Study
  Country: AU (occurrence: AU)
  Receive Date: 20210122
  Receipt Date: 20210412
  Transmission Date: 20210717
  Serious: Yes (Death, Hospitalization)
  Sender: FDA-Public Use
  Company Number: AU-KARYOPHARM-2021KPT000040

PATIENT
  Age: 74 Year
  Sex: Female

DRUGS (1)
  1. SELINEXOR [Suspect]
     Active Substance: SELINEXOR
     Indication: DIFFUSE LARGE B-CELL LYMPHOMA
     Dosage: 60 MG, 2X/WEEK
     Route: 048
     Dates: start: 202011, end: 202012

REACTIONS (3)
  - Diffuse large B-cell lymphoma refractory [Unknown]
  - Cholecystitis [Unknown]
  - Neutropenic sepsis [Fatal]

NARRATIVE: CASE EVENT DATE: 20201224
